FAERS Safety Report 6788578-4 (Version None)
Quarter: 2010Q2

REPORT INFORMATION
  Report Type: 
  Country: None (occurrence: None)
  Receive Date: 20100623
  Receipt Date: 20080514
  Transmission Date: 20101027
  Serious: No
  Sender: FDA-Public Use
  Company Number: US-PFIZER INC-2008025973

PATIENT
  Sex: Female

DRUGS (6)
  1. XALATAN [Suspect]
     Indication: INTRAOCULAR PRESSURE INCREASED
     Route: 031
  2. XALATAN [Suspect]
     Indication: GLAUCOMA
  3. BETIMOL [Concomitant]
  4. CLOTRIMAZOLE [Concomitant]
  5. TOPROL-XL [Concomitant]
  6. DYAZIDE [Concomitant]

REACTIONS (1)
  - DIZZINESS [None]
